FAERS Safety Report 18756861 (Version 1)
Quarter: 2021Q1

REPORT INFORMATION
  Report Type: Spontaneous
  Country: US (occurrence: US)
  Receive Date: 20210119
  Receipt Date: 20210119
  Transmission Date: 20210419
  Serious: Yes (Other)
  Sender: FDA-Public Use
  Company Number: None

PATIENT
  Age: 33 Year
  Sex: Female
  Weight: 112 kg

DRUGS (4)
  1. BAMLANIVIMAB. [Suspect]
     Active Substance: BAMLANIVIMAB
     Indication: COVID-19
     Dosage: ?          OTHER FREQUENCY:ONCE;?
     Route: 041
     Dates: start: 20210118, end: 20210118
  2. AZITHROMYCIN ANHYDROUS. [Concomitant]
     Active Substance: AZITHROMYCIN ANHYDROUS
     Dates: start: 20210115
  3. ASCORBIC ACID. [Concomitant]
     Active Substance: ASCORBIC ACID
     Dates: start: 20210115
  4. SERTRALINE [Concomitant]
     Active Substance: SERTRALINE HYDROCHLORIDE
     Dates: start: 20190101

REACTIONS (5)
  - Anaphylactic reaction [None]
  - Rash [None]
  - Dyspnoea [None]
  - Mouth swelling [None]
  - Dysphagia [None]

NARRATIVE: CASE EVENT DATE: 20210118
